FAERS Safety Report 8240940-9 (Version None)
Quarter: 2012Q1

REPORT INFORMATION
  Report Type: 
  Country: None (occurrence: None)
  Receive Date: 20120328
  Receipt Date: 20120322
  Transmission Date: 20120608
  Serious: Yes (Life-Threatening, Other)
  Sender: FDA-Public Use
  Company Number: IT-VERTEX PHARMACEUTICALS INC.-AE-2012-002626

PATIENT
  Sex: Female
  Weight: 58.3 kg

DRUGS (4)
  1. CITALOPRAM HYDROBROMIDE [Concomitant]
     Dates: start: 20110607
  2. VX-950 [Suspect]
     Indication: HEPATITIS C
     Route: 048
     Dates: start: 20120218, end: 20120220
  3. PEGINTERFERON ALFA-2A [Concomitant]
     Indication: HEPATITIS C
     Dates: start: 20120217, end: 20120217
  4. RIBAVIRIN [Concomitant]
     Indication: HEPATITIS C
     Route: 048
     Dates: start: 20120218, end: 20120220

REACTIONS (2)
  - PURPURA [None]
  - RASH [None]
